FAERS Safety Report 22290082 (Version 2)
Quarter: 2023Q2

REPORT INFORMATION
  Report Type: Spontaneous
  Country: US (occurrence: US)
  Receive Date: 20230505
  Receipt Date: 20230511
  Transmission Date: 20230721
  Serious: No
  Sender: FDA-Public Use
  Company Number: US-PFIZER INC-202300177787

PATIENT
  Age: 40 Year
  Sex: Female

DRUGS (1)
  1. NURTEC ODT [Suspect]
     Active Substance: RIMEGEPANT SULFATE
     Indication: Headache
     Dosage: 75 MG, ALTERNATE DAY

REACTIONS (4)
  - Pain [Unknown]
  - Myalgia [Unknown]
  - Off label use [Unknown]
  - Drug ineffective for unapproved indication [Unknown]
